FAERS Safety Report 7924006 (Version 2)
Quarter: 2013Q4

REPORT INFORMATION
  Report Type: Spontaneous
  Country: US (occurrence: US)
  Receive Date: 20110502
  Receipt Date: 20131231
  Transmission Date: 20140711
  Serious: Yes (Other)
  Sender: FDA-Public Use
  Company Number: US-BAYER-2011-035953

PATIENT
  Age: 22 Year
  Sex: Female

DRUGS (9)
  1. YAZ [Suspect]
     Dosage: UNK
     Dates: start: 200303, end: 200505
  2. YASMIN [Suspect]
     Dosage: UNK
     Dates: start: 200303, end: 200505
  3. ALDARA [Concomitant]
     Dosage: 5 %, UNK
  4. ZITHROMAX [Concomitant]
     Dosage: 25 MG, UNK
  5. CIPROFLOXACIN [Concomitant]
     Dosage: 500 TABLET
  6. METROGEL [Concomitant]
     Dosage: 0.75 UNK, UNK
  7. PHENERGAN [PROMETHAZINE] [Concomitant]
     Dosage: 25 MG, EVERY 6 AS NEEDED
  8. PROTONIX [Concomitant]
     Dosage: 40 MG, PER DAY
  9. IMODIUM A-D [Concomitant]
     Dosage: 2 MG, UP TO 4 [AS WRITTEN] A DAY

REACTIONS (6)
  - Gallbladder injury [None]
  - Cholecystitis chronic [None]
  - Injury [None]
  - Pain [None]
  - Emotional distress [None]
  - Anxiety [None]
